FAERS Safety Report 17568696 (Version 1)
Quarter: 2020Q1

REPORT INFORMATION
  Report Type: Spontaneous
  Country: JP (occurrence: JP)
  Receive Date: 20200321
  Receipt Date: 20200321
  Transmission Date: 20200409
  Serious: Yes (Death, Hospitalization, Other)
  Sender: FDA-Public Use
  Company Number: JP-TAKEDA-2020TJP006153

PATIENT
  Age: 80 Year
  Sex: Male

DRUGS (2)
  1. TAKEPRON INTRAVENOUS 30MG. [Suspect]
     Active Substance: LANSOPRAZOLE
     Indication: PRODUCT USED FOR UNKNOWN INDICATION
     Dosage: DOSAGE IS UNKNOWN
     Route: 050
     Dates: start: 201904, end: 201905
  2. PREDNISOLONE POWDER 1% [Suspect]
     Active Substance: PREDNISOLONE
     Indication: PRODUCT USED FOR UNKNOWN INDICATION
     Dosage: DOSAGE IS UNKNOWN
     Route: 050
     Dates: start: 201905, end: 201905

REACTIONS (3)
  - Shock haemorrhagic [Fatal]
  - Toxic epidermal necrolysis [Unknown]
  - Gastric ulcer haemorrhage [Fatal]
